FAERS Safety Report 7684208-8 (Version None)
Quarter: 2011Q3

REPORT INFORMATION
  Report Type: 
  Country: None (occurrence: None)
  Receive Date: 20110815
  Receipt Date: 20110808
  Transmission Date: 20111222
  Serious: Yes (Other)
  Sender: FDA-Public Use
  Company Number: US-CEPHALON-US017137

PATIENT
  Age: 76 Year
  Sex: Female

DRUGS (3)
  1. PROVIGIL [Suspect]
     Indication: MAJOR DEPRESSION
     Route: 048
     Dates: start: 20060111, end: 20060201
  2. CYMBALTA [Concomitant]
     Route: 065
  3. PROVIGIL [Suspect]
     Indication: CHRONIC FATIGUE SYNDROME

REACTIONS (1)
  - HYPONATRAEMIA [None]
